FAERS Safety Report 5243668-2 (Version None)
Quarter: 2007Q1

REPORT INFORMATION
  Report Type: 
  Country: None (occurrence: None)
  Receive Date: 20070222
  Receipt Date: 20070214
  Transmission Date: 20070707
  Serious: Yes (Other)
  Sender: FDA-Public Use
  Company Number: FR-JNJFOC-20070203408

PATIENT
  Age: 5 Decade
  Sex: Female
  Weight: 55 kg

DRUGS (5)
  1. REMICADE [Suspect]
     Route: 042
  2. REMICADE [Suspect]
     Dosage: 5TH INFUSION
     Route: 042
  3. REMICADE [Suspect]
     Dosage: 4TH INFUSION
     Route: 042
  4. REMICADE [Suspect]
     Indication: RHEUMATOID ARTHRITIS
     Dosage: 1ST INFUSION
     Route: 042
  5. EFFEXOR [Concomitant]
     Indication: DEPRESSION
     Route: 065

REACTIONS (1)
  - AMNESIA [None]
